FAERS Safety Report 16479215 (Version 1)
Quarter: 2019Q2

REPORT INFORMATION
  Report Type: Spontaneous
  Country: US (occurrence: US)
  Receive Date: 20190626
  Receipt Date: 20190626
  Transmission Date: 20190711
  Serious: No
  Sender: FDA-Public Use
  Company Number: US-SAOL THERAPEUTICS-2019SAO00027

PATIENT
  Age: 61 Year
  Sex: Male

DRUGS (2)
  1. LIORESAL [Suspect]
     Active Substance: BACLOFEN
     Dosage: 3 ?G, \DAY
     Route: 037
     Dates: start: 20190119
  2. LIORESAL [Suspect]
     Active Substance: BACLOFEN
     Dosage: 25 ?G, \DAY
     Route: 037
     Dates: end: 20190119

REACTIONS (1)
  - Hypotonia [Recovered/Resolved]

NARRATIVE: CASE EVENT DATE: 20190119
